FAERS Safety Report 8259207-8 (Version None)
Quarter: 2012Q2

REPORT INFORMATION
  Report Type: 
  Country: None (occurrence: None)
  Receive Date: 20120404
  Receipt Date: 20120330
  Transmission Date: 20120825
  Serious: Yes (Death, Life-Threatening)
  Sender: FDA-Public Use
  Company Number: JP-PFIZER INC-2011049440

PATIENT
  Age: 86 Year
  Sex: Male
  Weight: 55 kg

DRUGS (20)
  1. ARGATROBAN [Suspect]
     Dosage: 6.0MCG/KG/MIN
     Route: 041
     Dates: start: 20110204, end: 20110208
  2. MUCOSTA [Concomitant]
     Indication: PROPHYLAXIS
     Dosage: 100 MG, UNK
     Route: 048
     Dates: end: 20110208
  3. ARICEPT [Concomitant]
     Dosage: 5 MG, UNK
     Route: 048
     Dates: end: 20110208
  4. ARGATROBAN [Suspect]
     Dosage: 50 MG, 1X/DAY
     Route: 041
     Dates: start: 20110205, end: 20110209
  5. ARGATROBAN [Suspect]
     Dosage: 10 MG, 1X/DAY
     Route: 041
     Dates: start: 20110214, end: 20110214
  6. HANP [Concomitant]
     Dosage: 1000 MCG
     Route: 042
     Dates: start: 20110218, end: 20110218
  7. ARGATROBAN [Suspect]
     Dosage: 30 MG, 1X/DAY
     Route: 041
     Dates: start: 20110217, end: 20110217
  8. ARGATROBAN [Suspect]
     Dosage: 0.2MCG/KG/MIN
     Route: 041
     Dates: start: 20110210, end: 20110217
  9. FAMOTIDINE [Concomitant]
     Indication: PROPHYLAXIS
     Dosage: 20 MG, UNK
     Route: 048
     Dates: end: 20110208
  10. SOLDACTONE [Concomitant]
     Dosage: 200 MG, UNK
     Route: 042
     Dates: start: 20110210, end: 20110217
  11. MEPTIN [Concomitant]
     Dosage: 50 MCG
     Route: 048
     Dates: end: 20110208
  12. ARGATROBAN [Suspect]
     Indication: HEPARIN-INDUCED THROMBOCYTOPENIA
     Dosage: 40 MG, 1X/DAY
     Route: 041
     Dates: start: 20110204, end: 20110204
  13. HEPARIN SODIUM [Concomitant]
     Dosage: UNK
     Route: 051
     Dates: start: 20110201
  14. PLATELETS, HUMAN BLOOD [Concomitant]
     Dosage: 10 IU, UNK
     Route: 042
     Dates: start: 20110216, end: 20110217
  15. ARGATROBAN [Suspect]
     Dosage: 20 MG, 1X/DAY
     Route: 041
     Dates: start: 20110210, end: 20110210
  16. ZOSYN [Concomitant]
     Dosage: 9 G, UNK
     Route: 042
     Dates: start: 20110120, end: 20110217
  17. DIGOXIN [Concomitant]
     Dosage: 0.125 MG, UNK
     Route: 048
     Dates: end: 20110208
  18. ASPIRIN [Concomitant]
     Dosage: 100 MG, UNK
     Route: 048
     Dates: end: 20110208
  19. ARGATROBAN [Suspect]
     Dosage: 30 MG, 1X/DAY
     Route: 041
     Dates: start: 20110211, end: 20110211
  20. ARGATROBAN [Suspect]
     Dosage: 40 MG, 1X/DAY
     Route: 041
     Dates: start: 20110218, end: 20110218

REACTIONS (3)
  - MELAENA [None]
  - PULMONARY ALVEOLAR HAEMORRHAGE [None]
  - ACTIVATED PARTIAL THROMBOPLASTIN TIME PROLONGED [None]
